FAERS Safety Report 10087909 (Version 2)
Quarter: 2014Q2

REPORT INFORMATION
  Report Type: Spontaneous
  Country: US (occurrence: US)
  Receive Date: 20140418
  Receipt Date: 20140418
  Transmission Date: 20141212
  Serious: Yes (Hospitalization, Other)
  Sender: FDA-Public Use
  Company Number: US-NAPPMUNDI-USA-2014-0111397

PATIENT
  Age: 15 Year
  Sex: Female

DRUGS (3)
  1. OXYCODONE HYDROCHLORIDE (SIMILAR TO NDA 22-272) [Suspect]
     Indication: DRUG ABUSE
     Dosage: UNK
     Dates: end: 20140207
  2. AMBIEN [Suspect]
     Indication: DRUG ABUSE
     Dosage: 5 MG, UNK
     Route: 048
     Dates: end: 20140207
  3. MARIJUANA [Suspect]
     Indication: SUBSTANCE ABUSE
     Dosage: UNK
     Route: 055
     Dates: end: 20140207

REACTIONS (1)
  - Substance abuse [Recovering/Resolving]
